FAERS Safety Report 19264866 (Version 2)
Quarter: 2021Q2

REPORT INFORMATION
  Report Type: Spontaneous
  Country: CH (occurrence: CH)
  Receive Date: 20210517
  Receipt Date: 20210521
  Transmission Date: 20210717
  Serious: No
  Sender: FDA-Public Use
  Company Number: CH-MYLANLABS-2021M1022366

PATIENT
  Sex: Female

DRUGS (5)
  1. TOBI [Suspect]
     Active Substance: TOBRAMYCIN
     Indication: INFECTIVE EXACERBATION OF BRONCHIECTASIS
     Dosage: 2 X 300MG (5ML) DAILY, FOR 4 WEEKS
     Dates: start: 20210417
  2. SPIRIVA [Concomitant]
     Active Substance: TIOTROPIUM BROMIDE MONOHYDRATE
     Dosage: UNK
  3. KALOBA                             /01544201/ [Concomitant]
     Dosage: UNK
  4. TOBI [Suspect]
     Active Substance: TOBRAMYCIN
     Indication: PSEUDOMONAS INFECTION
  5. TOBI [Suspect]
     Active Substance: TOBRAMYCIN
     Indication: PNEUMONIA PSEUDOMONAL

REACTIONS (1)
  - Off label use [Unknown]

NARRATIVE: CASE EVENT DATE: 20210417
